FAERS Safety Report 7305644-5 (Version None)
Quarter: 2011Q1

REPORT INFORMATION
  Report Type: 
  Country: None (occurrence: None)
  Receive Date: 20110222
  Receipt Date: 20110214
  Transmission Date: 20110831
  Serious: Yes (Congenital Anomaly)
  Sender: FDA-Public Use
  Company Number: A0687228A

PATIENT
  Sex: Female

DRUGS (5)
  1. ANTACIDS [Concomitant]
     Route: 064
  2. PAXIL CR [Suspect]
     Indication: ANXIETY
     Route: 064
  3. TYLENOL [Concomitant]
     Route: 064
  4. BUSPIRONE HYDROCHLORIDE [Concomitant]
     Route: 064
  5. PRENATAL VITAMINS [Concomitant]
     Route: 064
     Dates: start: 20000101, end: 20040101

REACTIONS (4)
  - VENTRICULAR SEPTAL DEFECT [None]
  - DRUG EXPOSURE DURING PREGNANCY [None]
  - ATRIAL SEPTAL DEFECT [None]
  - PULMONARY ARTERY STENOSIS CONGENITAL [None]
